FAERS Safety Report 16038389 (Version 11)
Quarter: 2021Q3

REPORT INFORMATION
  Report Type: Report from Study
  Country: GB (occurrence: GB)
  Receive Date: 20190305
  Receipt Date: 20210923
  Transmission Date: 20211014
  Serious: Yes (Hospitalization, Other)
  Sender: FDA-Public Use
  Company Number: GB-PFIZER INC-2019089116

PATIENT
  Age: 69 Year
  Sex: Female

DRUGS (30)
  1. PACLITAXEL. [Suspect]
     Active Substance: PACLITAXEL
     Indication: BREAST CANCER METASTATIC
     Dosage: 138 MG, EVERY 4 WEEKS
     Route: 042
     Dates: start: 20151203, end: 20160203
  2. DOCETAXEL. [Suspect]
     Active Substance: DOCETAXEL
     Indication: BREAST CANCER METASTATIC
     Dosage: 124 MG, EVERY 3 WEEKS
     Route: 042
     Dates: start: 20151106, end: 20151106
  3. METOCLOPRAMIDE. [Concomitant]
     Active Substance: METOCLOPRAMIDE
     Indication: PROPHYLAXIS OF NAUSEA AND VOMITING
     Dosage: 10 MG, UNK
     Route: 048
     Dates: start: 20151203
  4. DEXAMETHASONE. [Concomitant]
     Active Substance: DEXAMETHASONE
     Indication: PROPHYLAXIS
     Dosage: 8 MG, UNK
     Route: 048
     Dates: start: 20151105
  5. LOPERAMIDE [Concomitant]
     Active Substance: LOPERAMIDE
     Indication: PROPHYLAXIS AGAINST DIARRHOEA
     Dosage: 2 MG, UNK (4 TABLET TWICE A DAY FOR 3 DAYS)
     Route: 048
     Dates: start: 20151203
  6. TRASTUZUMAB. [Suspect]
     Active Substance: TRASTUZUMAB
     Dosage: 350 MG, EVERY 3 WEEKS (MAINTENANCE DOSE)
     Route: 042
     Dates: start: 20151203, end: 20180427
  7. LORATADINE. [Concomitant]
     Active Substance: LORATADINE
     Dosage: UNK
     Route: 048
     Dates: start: 20151119, end: 20151217
  8. PACLITAXEL. [Suspect]
     Active Substance: PACLITAXEL
     Dosage: 139 MG, EVERY 4 WEEKS
     Route: 042
     Dates: start: 20151210
  9. TRAMADOL HYDROCHLORIDE. [Concomitant]
     Active Substance: TRAMADOL HYDROCHLORIDE
     Indication: PROPHYLAXIS
     Dosage: 50 MG, UNK
     Route: 048
     Dates: start: 20151105
  10. TRIMETHOPRIM. [Concomitant]
     Active Substance: TRIMETHOPRIM
     Indication: URINARY TRACT INFECTION
     Dosage: 200 MG, 2X/DAY
     Route: 048
     Dates: start: 20151210
  11. LOPERAMIDE [Concomitant]
     Active Substance: LOPERAMIDE
     Dosage: UNK
  12. PERTUZUMAB. [Suspect]
     Active Substance: PERTUZUMAB
     Dosage: 420 MG, EVERY 3 WEEKS (MAINTENANCE DOSE)
     Route: 042
     Dates: start: 20151203
  13. CHLORHEXIDINE GLUCONATE. [Concomitant]
     Active Substance: CHLORHEXIDINE GLUCONATE
     Indication: PROPHYLAXIS
  14. ROSUVASTATIN. [Concomitant]
     Active Substance: ROSUVASTATIN
     Dosage: 5 MG
     Route: 048
     Dates: start: 201806, end: 201911
  15. PERTUZUMAB. [Suspect]
     Active Substance: PERTUZUMAB
     Indication: BREAST CANCER METASTATIC
     Dosage: 840 MG, SINGLE (LOADING DOSE)
     Route: 042
     Dates: start: 20151105, end: 20151105
  16. TRASTUZUMAB. [Suspect]
     Active Substance: TRASTUZUMAB
     Dosage: 336 MG, EVERY 3 WEEKS
     Route: 042
     Dates: start: 20180518, end: 20190427
  17. CHLORHEXIDINE GLUCONATE. [Concomitant]
     Active Substance: CHLORHEXIDINE GLUCONATE
     Indication: PROPHYLAXIS
     Dosage: 4 UNK, 1X/DAY (MOUTHWASH)
     Route: 048
     Dates: start: 20151105
  18. PACLITAXEL. [Suspect]
     Active Substance: PACLITAXEL
     Dosage: 68 MG, WEEKLY
     Route: 042
     Dates: start: 20160303, end: 20160310
  19. ATORVASTATIN [Concomitant]
     Active Substance: ATORVASTATIN
     Dosage: 40 MG, 1X/DAY
     Route: 048
     Dates: start: 20170701
  20. RAMIPRIL. [Concomitant]
     Active Substance: RAMIPRIL
     Dosage: 1.25 MG, 2X/DAY
     Route: 048
     Dates: start: 20170523
  21. ACETYLSALICYLIC ACID [Concomitant]
     Active Substance: ASPIRIN
     Dosage: 75 MG, 1X/DAY
     Route: 048
     Dates: start: 20170523, end: 20170701
  22. LANSOPRAZOLE. [Concomitant]
     Active Substance: LANSOPRAZOLE
     Dosage: 30 MG, 1X/DAY
     Route: 048
     Dates: start: 20170312
  23. CETIRIZINE [Concomitant]
     Active Substance: CETIRIZINE HYDROCHLORIDE
     Indication: ANTIVIRAL PROPHYLAXIS
     Dosage: 10 MG, UNK (1 TABLET AT NIGHT FOR 3 DAYS)
     Route: 048
     Dates: start: 20151203
  24. ROSUVASTATIN CALCIUM. [Concomitant]
     Active Substance: ROSUVASTATIN CALCIUM
  25. TRASTUZUMAB. [Suspect]
     Active Substance: TRASTUZUMAB
     Indication: BREAST CANCER METASTATIC
     Dosage: 450 MG, SINGLE (LOADING DOSE)
     Route: 041
     Dates: start: 20151105, end: 20151105
  26. RANITIDINE. [Concomitant]
     Active Substance: RANITIDINE
     Indication: PROPHYLAXIS
     Dosage: 150 MG, UNK (1 TABLET TWICE A DAY FOR 3 DAYS)
     Route: 048
     Dates: start: 20151203
  27. ASPIRIN. [Concomitant]
     Active Substance: ASPIRIN
  28. PACLITAXEL. [Suspect]
     Active Substance: PACLITAXEL
     Dosage: 102 MG, EVERY 4 WEEKS
     Route: 042
     Dates: start: 20160204, end: 20160218
  29. CLOPIDOGREL [Concomitant]
     Active Substance: CLOPIDOGREL BISULFATE
     Route: 048
     Dates: start: 20170701
  30. EZETIMIBE. [Concomitant]
     Active Substance: EZETIMIBE
     Dosage: UNK
     Route: 048
     Dates: start: 2019

REACTIONS (17)
  - Anaphylactic reaction [Recovered/Resolved]
  - Neuropathy peripheral [Recovered/Resolved]
  - Urosepsis [Recovered/Resolved]
  - Tremor [Recovered/Resolved]
  - Hypertension [Recovered/Resolved]
  - Tendonitis [Not Recovered/Not Resolved]
  - Bacterial test positive [Recovered/Resolved]
  - Escherichia test positive [Not Recovered/Not Resolved]
  - Neuropathy peripheral [Recovered/Resolved]
  - Palmar erythema [Recovered/Resolved]
  - Defaecation urgency [Recovered/Resolved]
  - Rash [Recovered/Resolved]
  - Mucosal inflammation [Recovered/Resolved]
  - Fatigue [Recovered/Resolved]
  - Diarrhoea [Recovered/Resolved]
  - Urinary tract infection [Recovered/Resolved]
  - Malaise [Recovered/Resolved]

NARRATIVE: CASE EVENT DATE: 201512
